FAERS Safety Report 9441248 (Version 1)
Quarter: 2013Q3

REPORT INFORMATION
  Report Type: Spontaneous
  Country: GB (occurrence: GB)
  Receive Date: 20130805
  Receipt Date: 20130805
  Transmission Date: 20140515
  Serious: Yes (Other)
  Sender: FDA-Public Use
  Company Number: GB-PFIZER INC-2013225929

PATIENT
  Age: 69 Year
  Sex: Female

DRUGS (2)
  1. LYRICA [Suspect]
     Dosage: 75 MG, DAILY
  2. LYRICA [Suspect]
     Dosage: 600 MG, UNK

REACTIONS (4)
  - Convulsion [Unknown]
  - Cerebrovascular accident [Unknown]
  - Retching [Unknown]
  - Withdrawal syndrome [Unknown]
